FAERS Safety Report 5913565-5 (Version None)
Quarter: 2008Q4

REPORT INFORMATION
  Report Type: 
  Country: None (occurrence: None)
  Receive Date: 20081007
  Receipt Date: 20080929
  Transmission Date: 20090506
  Serious: Yes (Death)
  Sender: FDA-Public Use
  Company Number: AZAES200800329

PATIENT
  Age: 75 Year
  Sex: Male
  Weight: 68 kg

DRUGS (11)
  1. VIDAZA [Suspect]
     Indication: FIBROSIS
     Dosage: (75 MG/M2, X7 DAILY, SUBCUTANEOUS)
     Route: 058
     Dates: start: 20080821, end: 20080828
  2. VIDAZA [Suspect]
     Indication: MYELODYSPLASTIC SYNDROME
     Dosage: (75 MG/M2, X7 DAILY, SUBCUTANEOUS)
     Route: 058
     Dates: start: 20080821, end: 20080828
  3. TRANEXAMIC ACID (TRANEXAMIC ACID) [Concomitant]
  4. VANCOMYCIN [Concomitant]
  5. IMIPENEM (IMIPENEM) [Concomitant]
  6. CASPOFUNGIN (CASPOFUNGIN) [Concomitant]
  7. VITAMIN B6 [Concomitant]
  8. VORICONAZOLE (VORICONAZOLE) [Concomitant]
  9. MAGNESIUM METAMIZOLE (METAMIZOLE MAGNESIUM) [Concomitant]
  10. TRAMADOL HCL [Concomitant]
  11. G-CSF (GRANULOCYTE COLONY STIMULATING FACTOR) [Concomitant]

REACTIONS (4)
  - CARDIO-RESPIRATORY ARREST [None]
  - COLITIS ISCHAEMIC [None]
  - HYPOTENSION [None]
  - RENAL FAILURE [None]
